FAERS Safety Report 8973385 (Version 4)
Quarter: 2013Q1

REPORT INFORMATION
  Report Type: Spontaneous
  Country: US (occurrence: US)
  Receive Date: 20121219
  Receipt Date: 20130225
  Transmission Date: 20140127
  Serious: Yes (Hospitalization)
  Sender: FDA-Public Use
  Company Number: US-JNJFOC-20121207828

PATIENT
  Age: 23 Year
  Sex: Female
  Weight: 71.4 kg

DRUGS (5)
  1. IBUPROFEN [Suspect]
     Route: 048
  2. IBUPROFEN [Suspect]
     Indication: PAIN
     Dosage: EVERY 8 HOUR
     Route: 048
     Dates: start: 20121127, end: 20121203
  3. VANCOMYCIN HCL [Suspect]
     Indication: FEBRILE NEUTROPENIA
     Dosage: EVERY 12 HOURS
     Route: 042
     Dates: start: 20121127, end: 20121202
  4. CEFEPIME [Suspect]
     Indication: FEBRILE NEUTROPENIA
     Dosage: EVERY 8 HOUR
     Route: 042
     Dates: start: 20121127, end: 20121129
  5. GEMTUZUMAB OZOGAMICIN [Suspect]
     Indication: ACUTE PROMYELOCYTIC LEUKAEMIA
     Dosage: CONSOLIDATION CYCLE 5 DAY 1
     Route: 042
     Dates: start: 20120309, end: 20121115

REACTIONS (3)
  - Febrile neutropenia [Recovered/Resolved]
  - Blood creatinine increased [Recovered/Resolved]
  - Renal failure acute [Recovered/Resolved]
